FAERS Safety Report 19153235 (Version 1)
Quarter: 2021Q2

REPORT INFORMATION
  Report Type: Spontaneous
  Country: US (occurrence: US)
  Receive Date: 20210418
  Receipt Date: 20210418
  Transmission Date: 20210717
  Serious: Yes (Disabling, Other)
  Sender: FDA-Public Use
  Company Number: None

PATIENT
  Age: 33 Year
  Sex: Female

DRUGS (1)
  1. REGLAN [Suspect]
     Active Substance: METOCLOPRAMIDE HYDROCHLORIDE
     Indication: NAUSEA
     Route: 042
     Dates: start: 20210416, end: 20210416

REACTIONS (5)
  - Presyncope [None]
  - Dizziness [None]
  - Dyspnoea [None]
  - Anxiety [None]
  - Hyperhidrosis [None]

NARRATIVE: CASE EVENT DATE: 20210416
